FAERS Safety Report 20461898 (Version 1)
Quarter: 2022Q1

REPORT INFORMATION
  Report Type: Spontaneous
  Country: US (occurrence: US)
  Receive Date: 20220211
  Receipt Date: 20220211
  Transmission Date: 20220423
  Serious: Yes (Other)
  Sender: FDA-Public Use
  Company Number: US-FERAPHARMA-2021-US-010166

PATIENT
  Age: 60 Decade
  Sex: Female

DRUGS (2)
  1. KEFLEX [Suspect]
     Active Substance: CEPHALEXIN
     Indication: Product used for unknown indication
     Route: 048
     Dates: start: 2014, end: 2014
  2. CLINDAMYCIN [Suspect]
     Active Substance: CLINDAMYCIN
     Indication: Product used for unknown indication
     Route: 065
     Dates: start: 2014, end: 2014

REACTIONS (4)
  - Drug hypersensitivity [Recovered/Resolved]
  - Stevens-Johnson syndrome [Recovered/Resolved]
  - Cutaneous symptom [Not Recovered/Not Resolved]
  - Hyperaesthesia [Not Recovered/Not Resolved]

NARRATIVE: CASE EVENT DATE: 20140101
